FAERS Safety Report 7926876-9 (Version None)
Quarter: 2011Q4

REPORT INFORMATION
  Report Type: 
  Country: None (occurrence: None)
  Receive Date: 20111118
  Receipt Date: 20111115
  Transmission Date: 20120403
  Serious: Yes (Other)
  Sender: FDA-Public Use
  Company Number: JP-PFIZER INC-2011266281

PATIENT
  Sex: Male

DRUGS (2)
  1. KEISIKAJUTUBUTO [Suspect]
     Route: 048
  2. NORVASC [Suspect]
     Dosage: 5 MG, 1X/DAY
     Route: 048

REACTIONS (1)
  - HYPOKALAEMIA [None]
